FAERS Safety Report 12342506 (Version 6)
Quarter: 2019Q3

REPORT INFORMATION
  Report Type: Spontaneous
  Country: US (occurrence: US)
  Receive Date: 20160506
  Receipt Date: 20190903
  Transmission Date: 20191004
  Serious: No
  Sender: FDA-Public Use
  Company Number: US-PFIZER INC-2014015867

PATIENT
  Age: 47 Year
  Sex: Female
  Weight: 83.9 kg

DRUGS (25)
  1. METHADONE HCL [Concomitant]
     Active Substance: METHADONE HYDROCHLORIDE
     Indication: PAIN
     Dosage: 10 MG, 4X/DAY
  2. HYDROXYZINE HCL [Concomitant]
     Active Substance: HYDROXYZINE HYDROCHLORIDE
     Indication: URTICARIA
  3. VITAMIN D3 [Concomitant]
     Active Substance: CHOLECALCIFEROL
     Dosage: UNK
  4. PROMETHAZINE [Concomitant]
     Active Substance: PROMETHAZINE HYDROCHLORIDE
     Indication: NAUSEA
     Dosage: UNK
  5. CYCLOBENZAPRINE HCL [Concomitant]
     Active Substance: CYCLOBENZAPRINE HYDROCHLORIDE
     Indication: MUSCLE SPASMS
  6. LYRICA [Suspect]
     Active Substance: PREGABALIN
     Dosage: UNK
     Route: 048
  7. POTASSIUM CITRATE. [Concomitant]
     Active Substance: POTASSIUM CITRATE
     Dosage: UNK
  8. TESTOSTERONE. [Concomitant]
     Active Substance: TESTOSTERONE
     Dosage: CREAM 1% -ONCE DAILY
  9. LYRICA [Suspect]
     Active Substance: PREGABALIN
     Dosage: 200 MG, UNK
  10. METHADONE [Concomitant]
     Active Substance: METHADONE HYDROCHLORIDE
     Indication: PAIN
     Dosage: 10 MG, 4X/DAY
  11. PROVIGIL [Concomitant]
     Active Substance: MODAFINIL
     Dosage: UNK
  12. MODAFINIL. [Concomitant]
     Active Substance: MODAFINIL
     Dosage: 200 MG, 1X/DAY
  13. VITAMIN D [Concomitant]
     Active Substance: VITAMIN D NOS
     Dosage: 300 IU, DAILY
  14. VOLTAREN [Concomitant]
     Active Substance: DICLOFENAC SODIUM
     Dosage: 50 MG, UNK
  15. CYCLOBENZAPRINE HCL [Concomitant]
     Active Substance: CYCLOBENZAPRINE HYDROCHLORIDE
     Indication: PAIN
     Dosage: 10 MG, BEDTIME AS NEEDED
     Route: 048
  16. LYRICA [Suspect]
     Active Substance: PREGABALIN
     Dosage: 200 MG, 2X/DAY
     Route: 048
  17. HYDROXYZINE HCL [Concomitant]
     Active Substance: HYDROXYZINE HYDROCHLORIDE
     Indication: PRURITUS
     Dosage: 25 MG, AS NEEDED
  18. OXYCODONE WITH APAP [Concomitant]
     Active Substance: ACETAMINOPHEN\OXYCODONE HYDROCHLORIDE
     Indication: PAIN
     Dosage: 1DF TWICE DAILY AS NEEDED (OXYCODONE: 5MG-ACETAMIN: 325MG
  19. PREVIDENT 5000 SENSITIVE [Concomitant]
     Active Substance: POTASSIUM NITRATE\SODIUM FLUORIDE
     Dosage: UNK
  20. OXYCODONE AND ACETAMINOPHEN [Concomitant]
     Active Substance: ACETAMINOPHEN\OXYCODONE HYDROCHLORIDE
     Dosage: 1 DF, AS NEEDED [OXYCODONE 5 MG] [ACETAMINOPHEN 325 MG](1 TABLET TWICE DAILY PRN)
  21. NUVIGIL [Concomitant]
     Active Substance: ARMODAFINIL
     Indication: SOMNOLENCE
     Dosage: 250 MG, AS NEEDED
  22. CYCLOBENZAPRINE. [Concomitant]
     Active Substance: CYCLOBENZAPRINE
     Indication: MUSCLE RELAXANT THERAPY
     Dosage: UNK
  23. TREXIMET [Concomitant]
     Active Substance: NAPROXEN SODIUM\SUMATRIPTAN SUCCINATE
     Indication: MIGRAINE
     Dosage: 85-500 MG
  24. SKELAXIN [Concomitant]
     Active Substance: METAXALONE
  25. CLINPRO 5000 [Concomitant]
     Active Substance: SODIUM FLUORIDE
     Dosage: UNK

REACTIONS (3)
  - Drug hypersensitivity [Not Recovered/Not Resolved]
  - Hypersensitivity [Unknown]
  - Dyspnoea [Unknown]
